FAERS Safety Report 6820351-0 (Version None)
Quarter: 2010Q3

REPORT INFORMATION
  Report Type: 
  Country: None (occurrence: None)
  Receive Date: 20100707
  Receipt Date: 20100625
  Transmission Date: 20110219
  Serious: Yes (Hospitalization)
  Sender: FDA-Public Use
  Company Number: GB-TEVA-238903ISR

PATIENT
  Age: 78 Year
  Sex: Male

DRUGS (1)
  1. PREDNISOLONE [Suspect]
     Indication: TEMPORAL ARTERITIS
     Route: 048
     Dates: start: 20100301

REACTIONS (5)
  - ADRENAL SUPPRESSION [None]
  - BLOOD PRESSURE DECREASED [None]
  - DIZZINESS [None]
  - MOBILITY DECREASED [None]
  - WITHDRAWAL SYNDROME [None]
